FAERS Safety Report 4541307-7 (Version None)
Quarter: 2004Q4

REPORT INFORMATION
  Report Type: 
  Country: None (occurrence: None)
  Receive Date: 20041229
  Receipt Date: 20020204
  Transmission Date: 20050328
  Serious: Yes (Life-Threatening, Hospitalization)
  Sender: FDA-Public Use
  Company Number: GB-MERCK-0202USA00410

PATIENT
  Age: 83 Year
  Sex: Male

DRUGS (3)
  1. PRINIVIL [Suspect]
     Indication: CARDIAC FAILURE CONGESTIVE
     Route: 048
     Dates: end: 20020114
  2. ALLOPURINOL [Concomitant]
     Indication: GOUT
     Route: 048
  3. FUROSEMIDE [Concomitant]
     Route: 048
     Dates: end: 20020114

REACTIONS (9)
  - AORTIC VALVE STENOSIS [None]
  - BENIGN PROSTATIC HYPERPLASIA [None]
  - DEHYDRATION [None]
  - DUODENAL ULCER [None]
  - GASTRIC ULCER [None]
  - GASTROINTESTINAL HAEMORRHAGE [None]
  - LOWER RESPIRATORY TRACT INFECTION [None]
  - REFLUX OESOPHAGITIS [None]
  - RENAL FAILURE ACUTE [None]
